FAERS Safety Report 5412004-0 (Version None)
Quarter: 2007Q3

REPORT INFORMATION
  Report Type: 
  Country: None (occurrence: None)
  Receive Date: 20070810
  Receipt Date: 20070810
  Transmission Date: 20080115
  Serious: Yes (Hospitalization, Other)
  Sender: FDA-Public Use
  Company Number: None

PATIENT
  Age: 51 Year
  Sex: Male
  Weight: 94.3482 kg

DRUGS (13)
  1. TRUVADA [Suspect]
     Indication: HIV INFECTION
     Dosage: 300/200  ONCE DAILY  PO
     Route: 048
     Dates: start: 20060101, end: 20070724
  2. KALETRA [Concomitant]
  3. BACTRIM DS [Concomitant]
  4. AZITHROMYCIN [Concomitant]
  5. NEURONTIN [Concomitant]
  6. TRICOR [Concomitant]
  7. LISINOPRIL [Concomitant]
  8. ASPIRIN [Concomitant]
  9. CLARITIN [Concomitant]
  10. PRILOSEC [Concomitant]
  11. PERCOCET [Concomitant]
  12. PHENERGAN HCL [Concomitant]
  13. SINEMET [Concomitant]

REACTIONS (2)
  - DIALYSIS [None]
  - RENAL FAILURE ACUTE [None]
